FAERS Safety Report 9935618 (Version 1)
Quarter: 2014Q1

REPORT INFORMATION
  Report Type: Spontaneous
  Country: DE (occurrence: DE)
  Receive Date: 20140228
  Receipt Date: 20140228
  Transmission Date: 20141002
  Serious: Yes (Congenital Anomaly, Other)
  Sender: FDA-Public Use
  Company Number: PHHY2014DE021489

PATIENT
  Sex: Female

DRUGS (1)
  1. LOSARTAN [Suspect]
     Dosage: (MATERNAL DOSE: 50 MG/DAY)

REACTIONS (9)
  - Microcephaly [Unknown]
  - Renal dysplasia [Unknown]
  - Renal aplasia [Unknown]
  - Congenital cystic kidney disease [Unknown]
  - Premature baby [Unknown]
  - Renal failure [Unknown]
  - Anuria [Unknown]
  - Renal impairment [Unknown]
  - Foetal exposure during pregnancy [Unknown]
